FAERS Safety Report 9553182 (Version 1)
Quarter: 2013Q3

REPORT INFORMATION
  Report Type: Spontaneous
  Country: US (occurrence: None)
  Receive Date: 20130924
  Receipt Date: 20130924
  Transmission Date: 20140515
  Serious: Yes (Hospitalization)
  Sender: FDA-Public Use
  Company Number: None

PATIENT
  Age: 62 Year
  Sex: Female
  Weight: 89 kg

DRUGS (10)
  1. PRADAXA [Suspect]
     Indication: ATRIAL FIBRILLATION
     Dosage: 1 CAPSULE, BID, ORAL
     Route: 048
     Dates: start: 20130904, end: 20130923
  2. AMLODIPINE [Concomitant]
  3. ASA [Concomitant]
  4. ADVAIR [Concomitant]
  5. LISINOPRIL [Concomitant]
  6. LOPRESSOR [Concomitant]
  7. NIACIN [Concomitant]
  8. OMEPRAZOLE [Concomitant]
  9. SIMVASTATIN [Concomitant]
  10. SOTALOL [Concomitant]

REACTIONS (4)
  - Dizziness [None]
  - Fatigue [None]
  - Faeces discoloured [None]
  - Gastrointestinal haemorrhage [None]
